FAERS Safety Report 8569736-5 (Version None)
Quarter: 2012Q3

REPORT INFORMATION
  Report Type: 
  Country: None (occurrence: None)
  Receive Date: 20120803
  Receipt Date: 20120522
  Transmission Date: 20120928
  Serious: No
  Sender: FDA-Public Use
  Company Number: US-ABBOTT-12P-163-0937752-00

PATIENT
  Sex: Female
  Weight: 97.61 kg

DRUGS (6)
  1. PLAVIX [Concomitant]
     Indication: PROPHYLAXIS
  2. NORVASC [Concomitant]
     Indication: BLOOD PRESSURE INCREASED
  3. NIASPAN [Suspect]
     Indication: BLOOD CHOLESTEROL
  4. METOPROLOL TARTRATE [Concomitant]
     Indication: BLOOD PRESSURE INCREASED
  5. VICKS SPRAY NASAL [Suspect]
     Indication: PRODUCT USED FOR UNKNOWN INDICATION
     Route: 045
  6. CRESTOR [Concomitant]
     Indication: PRODUCT USED FOR UNKNOWN INDICATION

REACTIONS (5)
  - NASOPHARYNGITIS [None]
  - ANXIETY [None]
  - NERVOUSNESS [None]
  - FLUSHING [None]
  - DYSPNOEA [None]
